FAERS Safety Report 17079570 (Version 1)
Quarter: 2019Q4

REPORT INFORMATION
  Report Type: Spontaneous
  Country: IT (occurrence: IT)
  Receive Date: 20191127
  Receipt Date: 20191127
  Transmission Date: 20200122
  Serious: Yes (Hospitalization, Other)
  Sender: FDA-Public Use
  Company Number: IT-AUROBINDO-AUR-APL-2019-074743

PATIENT
  Age: 78 Year
  Sex: Female
  Weight: 84 kg

DRUGS (1)
  1. PANTOPRAZOLE GASTRO-RESISTANT TABLET [Suspect]
     Active Substance: PANTOPRAZOLE SODIUM
     Indication: GASTROOESOPHAGEAL REFLUX DISEASE
     Dosage: 1 DOSAGE FORM, AS NECESSARY
     Route: 048

REACTIONS (3)
  - Pain in extremity [Recovered/Resolved]
  - Anaemia [Recovered/Resolved]
  - Neuralgia [Recovered/Resolved]
